FAERS Safety Report 8235823-4 (Version None)
Quarter: 2012Q1

REPORT INFORMATION
  Report Type: 
  Country: None (occurrence: None)
  Receive Date: 20120326
  Receipt Date: 20120316
  Transmission Date: 20120608
  Serious: Yes (Death, Hospitalization)
  Sender: FDA-Public Use
  Company Number: US-ELI_LILLY_AND_COMPANY-US201111006240

PATIENT
  Sex: Female

DRUGS (4)
  1. CELEXA [Concomitant]
     Dosage: UNK
  2. FORTEO [Suspect]
     Dosage: 20 UG, QD
     Route: 065
     Dates: end: 20120122
  3. NORVASC [Concomitant]
     Dosage: UNK
  4. FORTEO [Suspect]
     Indication: OSTEOPOROSIS
     Dosage: 20 UG, QD
     Route: 065
     Dates: start: 20111103

REACTIONS (3)
  - SMALL INTESTINAL OBSTRUCTION [None]
  - NAUSEA [None]
  - PNEUMONIA [None]
